FAERS Safety Report 4925267-2 (Version None)
Quarter: 2006Q1

REPORT INFORMATION
  Report Type: 
  Country: None (occurrence: None)
  Receive Date: 20060228
  Receipt Date: 20060221
  Transmission Date: 20060701
  Serious: Yes (Hospitalization)
  Sender: FDA-Public Use
  Company Number: US-JNJFOC-20060205088

PATIENT
  Sex: Male

DRUGS (2)
  1. IMODIUM A-D [Suspect]
  2. IMODIUM A-D [Suspect]
     Dosage: 4 TO 8 MG DAILY

REACTIONS (1)
  - RESPIRATORY DISTRESS [None]
